FAERS Safety Report 7959884-2 (Version None)
Quarter: 2011Q4

REPORT INFORMATION
  Report Type: 
  Country: None (occurrence: None)
  Receive Date: 20111206
  Receipt Date: 20111129
  Transmission Date: 20120403
  Serious: Yes (Hospitalization, Other)
  Sender: FDA-Public Use
  Company Number: PHHY2011ES104217

PATIENT
  Age: 82 Year
  Sex: Female

DRUGS (13)
  1. CANDESARTAN CILEXETIL AND HYDROCHLOROTHIAZIDE [Concomitant]
  2. CANDESARTAN CILEXETIL [Concomitant]
     Indication: HYPERTENSION
     Dosage: 16 MG, QD
     Route: 048
     Dates: start: 20060101
  3. OMEPRAZOLE [Suspect]
     Dosage: 20 MG, QD
     Route: 048
     Dates: start: 20060101
  4. ASPIRIN [Interacting]
  5. SINTROM UNO [Interacting]
     Indication: ATRIAL FIBRILLATION
     Dates: start: 20070101
  6. GLICAZIDE [Concomitant]
     Indication: DIABETES MELLITUS
     Dosage: 60 MG, UNK
     Route: 048
     Dates: start: 20060101
  7. PREDNISONE [Concomitant]
  8. RILAST [Concomitant]
  9. BOI-K [Concomitant]
  10. DIGOXIN [Concomitant]
     Indication: ATRIAL FIBRILLATION
     Dosage: 1.25 MG, UNK
     Route: 048
     Dates: start: 20070201
  11. ACETYLCYSTEINE [Concomitant]
  12. SPIRIVA [Concomitant]
  13. CALCIUM CARBONATE [Concomitant]

REACTIONS (4)
  - INTERNATIONAL NORMALISED RATIO INCREASED [None]
  - DRUG INTERACTION [None]
  - EPISTAXIS [None]
  - BLOOD PRESSURE INCREASED [None]
